FAERS Safety Report 8373142-6 (Version None)
Quarter: 2012Q2

REPORT INFORMATION
  Report Type: 
  Country: None (occurrence: None)
  Receive Date: 20120521
  Receipt Date: 20120516
  Transmission Date: 20120825
  Serious: Yes (Death, Life-Threatening, Hospitalization)
  Sender: FDA-Public Use
  Company Number: FR-PFIZER INC-2012004089

PATIENT
  Age: 44 Year
  Sex: Female
  Weight: 50 kg

DRUGS (5)
  1. VFEND [Suspect]
     Indication: BRONCHOPULMONARY ASPERGILLOSIS
     Dosage: UNK
     Route: 048
     Dates: start: 20111007, end: 20111009
  2. TAZOBACTAM [Concomitant]
     Indication: RESPIRATORY DISTRESS
     Route: 042
  3. CIPROFLOXACIN HYDROCHLORIDE [Concomitant]
     Indication: RESPIRATORY DISTRESS
     Route: 042
  4. CANCIDAS [Concomitant]
     Indication: BRONCHOPULMONARY ASPERGILLOSIS
     Dosage: UNK
     Route: 042
     Dates: end: 20111007
  5. ZYVOX [Concomitant]
     Indication: LUNG DISORDER
     Dosage: UNK
     Route: 048
     Dates: start: 20111007

REACTIONS (1)
  - RENAL FAILURE [None]
